FAERS Safety Report 7047318-4 (Version None)
Quarter: 2010Q4

REPORT INFORMATION
  Report Type: 
  Country: None (occurrence: None)
  Receive Date: 20101008
  Receipt Date: 20100929
  Transmission Date: 20110411
  Serious: Yes (Hospitalization, Other)
  Sender: FDA-Public Use
  Company Number: 011776

PATIENT
  Sex: Female
  Weight: 73 kg

DRUGS (16)
  1. NEUPRO [Suspect]
     Indication: PARKINSON'S DISEASE
     Dosage: 16 MG QD TRANSDERMAL
     Route: 062
     Dates: start: 20091029, end: 20091202
  2. REQUIP [Suspect]
     Indication: PARKINSON'S DISEASE
     Dosage: 4 MG QD
     Dates: start: 20091202, end: 20091208
  3. NACOM (NACOM) [Suspect]
     Indication: PARKINSON'S DISEASE
     Dosage: 100 MG QID, 100 MG BID, 100 MG QD
     Dates: start: 20091029, end: 20091029
  4. NACOM (NACOM) [Suspect]
     Indication: PARKINSON'S DISEASE
     Dosage: 100 MG QID, 100 MG BID, 100 MG QD
     Dates: start: 20091030, end: 20091030
  5. NACOM (NACOM) [Suspect]
     Indication: PARKINSON'S DISEASE
     Dosage: 100 MG QID, 100 MG BID, 100 MG QD
     Dates: start: 20091102
  6. SIFROL (SIFROL) (NOT SPECIFIED) [Suspect]
     Indication: PARKINSON'S DISEASE
     Dosage: 0.7 MG QID, 0.52 MG QD, 1.05 MG QD, 2.1 MG QD
     Dates: start: 20020101, end: 20091028
  7. SIFROL (SIFROL) (NOT SPECIFIED) [Suspect]
     Indication: PARKINSON'S DISEASE
     Dosage: 0.7 MG QID, 0.52 MG QD, 1.05 MG QD, 2.1 MG QD
     Dates: start: 20091209, end: 20091211
  8. SIFROL (SIFROL) (NOT SPECIFIED) [Suspect]
     Indication: PARKINSON'S DISEASE
     Dosage: 0.7 MG QID, 0.52 MG QD, 1.05 MG QD, 2.1 MG QD
     Dates: start: 20091212, end: 20091216
  9. SIFROL (SIFROL) (NOT SPECIFIED) [Suspect]
     Indication: PARKINSON'S DISEASE
     Dosage: 0.7 MG QID, 0.52 MG QD, 1.05 MG QD, 2.1 MG QD
     Dates: start: 20091217
  10. BERODUAL [Concomitant]
  11. FLUTIDE [Concomitant]
  12. ATENOLOL [Concomitant]
  13. STALEVO 100 [Concomitant]
  14. AMANTADINE HCL [Concomitant]
  15. AZILECT [Concomitant]
  16. MADOPAR [Concomitant]

REACTIONS (1)
  - PARKINSON'S DISEASE [None]
